FAERS Safety Report 16362355 (Version 1)
Quarter: 2019Q3

REPORT INFORMATION
  Report Type: Spontaneous
  Country: US (occurrence: US)
  Receive Date: 20190526
  Receipt Date: 20190526
  Transmission Date: 20191004
  Serious: No
  Sender: FDA-Public Use
  Company Number: None

PATIENT
  Age: 62 Year
  Sex: Female
  Weight: 83.25 kg

DRUGS (7)
  1. DULERA [Concomitant]
     Active Substance: FORMOTEROL FUMARATE DIHYDRATE\MOMETASONE FUROATE
  2. CALCIUM [Concomitant]
     Active Substance: CALCIUM
  3. FASENRA [Suspect]
     Active Substance: BENRALIZUMAB
     Indication: NASAL CONGESTION
     Dosage: ?          QUANTITY:1 INJECTION(S);?
     Route: 061
     Dates: start: 20180601, end: 20190331
  4. MONTELAUST [Concomitant]
  5. MULTI-VITAMINS [Concomitant]
  6. FLONASE [Concomitant]
     Active Substance: FLUTICASONE PROPIONATE
  7. FASENRA [Suspect]
     Active Substance: BENRALIZUMAB
     Indication: DYSPNOEA
     Dosage: ?          QUANTITY:1 INJECTION(S);?
     Route: 061
     Dates: start: 20180601, end: 20190331

REACTIONS (6)
  - Insomnia [None]
  - Dyspnoea [None]
  - Cough [None]
  - Headache [None]
  - Feeling abnormal [None]
  - Sneezing [None]

NARRATIVE: CASE EVENT DATE: 20190524
